FAERS Safety Report 4564913-2 (Version None)
Quarter: 2005Q1

REPORT INFORMATION
  Report Type: 
  Country: None (occurrence: None)
  Receive Date: 20050126
  Receipt Date: 20050110
  Transmission Date: 20050727
  Serious: Yes (Hospitalization)
  Sender: FDA-Public Use
  Company Number: 2005008440

PATIENT
  Age: 49 Year
  Sex: Female
  Weight: 92 kg

DRUGS (4)
  1. CELEBREX [Suspect]
     Indication: BACK PAIN
     Dosage: 1200 MG (200 MG, 3 IN 1 D), ORAL
     Route: 048
     Dates: start: 20031101, end: 20041101
  2. METFORMIN HCL [Concomitant]
  3. PERINDOPRIL (PERINDOPRIL) [Concomitant]
  4. REPAGLINIDE (REPAGLINIDE) [Concomitant]

REACTIONS (2)
  - CEREBRAL INFARCTION [None]
  - ISCHAEMIC STROKE [None]
